FAERS Safety Report 9929486 (Version 1)
Quarter: 2014Q1

REPORT INFORMATION
  Report Type: Spontaneous
  Country: US (occurrence: US)
  Receive Date: 20140227
  Receipt Date: 20140227
  Transmission Date: 20141002
  Serious: Yes (Other)
  Sender: FDA-Public Use
  Company Number: CHPA2014US002902

PATIENT
  Age: 52 Year
  Sex: Male

DRUGS (7)
  1. CONTROL PLP [Suspect]
     Indication: SMOKING CESSATION THERAPY
     Dosage: 21 MG, UNK
     Route: 062
     Dates: start: 2013
  2. CONTROL PLP [Suspect]
     Indication: OFF LABEL USE
  3. IBUPROFEN [Suspect]
     Indication: PAIN
     Dosage: UNK
  4. PHENYTOIN SOD. [Concomitant]
     Indication: CONVULSION
     Dosage: 100 MG, QID
  5. LEVETIRACETAM [Concomitant]
     Indication: CONVULSION
     Dosage: 750 MG, BID
  6. PHENOBARBITAL [Concomitant]
     Indication: CONVULSION
     Dosage: 32.4 MG, TID
  7. DIAZEPAM [Concomitant]
     Indication: CONVULSION
     Dosage: 5 MG, BID

REACTIONS (2)
  - Convulsion [Recovered/Resolved]
  - Inappropriate schedule of drug administration [Unknown]
